FAERS Safety Report 14381074 (Version 2)
Quarter: 2018Q1

REPORT INFORMATION
  Report Type: Report from Study
  Country: US (occurrence: US)
  Receive Date: 20180112
  Receipt Date: 20180208
  Transmission Date: 20180509
  Serious: Yes (Death, Hospitalization, Other)
  Sender: FDA-Public Use
  Company Number: US-RETROPHIN, INC.-2017RTN00129

PATIENT
  Age: 35 Year
  Sex: Male

DRUGS (1)
  1. CHOLIC ACID [Suspect]
     Active Substance: CHOLIC ACID
     Indication: ADRENOGENITAL SYNDROME
     Dosage: 250 MG, 2X/DAY
     Dates: start: 20170330

REACTIONS (6)
  - Malaise [Unknown]
  - Metastases to liver [Unknown]
  - Ascites [Unknown]
  - Memory impairment [Unknown]
  - Death [Fatal]
  - Vascular access site occlusion [Unknown]

NARRATIVE: CASE EVENT DATE: 20171227
